FAERS Safety Report 16019717 (Version 2)
Quarter: 2020Q4

REPORT INFORMATION
  Report Type: Spontaneous
  Country: GB (occurrence: GB)
  Receive Date: 20190228
  Receipt Date: 20201202
  Transmission Date: 20210113
  Serious: Yes (Life-Threatening, Hospitalization, Other)
  Sender: FDA-Public Use
  Company Number: GB-TEVA-2019-GB-1015991

PATIENT
  Age: 56 Year
  Sex: Female

DRUGS (24)
  1. ONDANSETRON [Suspect]
     Active Substance: ONDANSETRON
     Dosage: THREE TIMES DAILY
     Dates: start: 20190120, end: 20190131
  2. MORPHINE SULFATE. [Concomitant]
     Active Substance: MORPHINE SULFATE
     Dosage: 10MG/5ML
  3. LINEZOLID. [Concomitant]
     Active Substance: LINEZOLID
     Dates: start: 20190125, end: 20190130
  4. FOSFOMYCIN [Concomitant]
     Active Substance: FOSFOMYCIN
     Dates: start: 20190120
  5. PARACETAMOL [Concomitant]
     Active Substance: ACETAMINOPHEN
  6. TINZAPARIN SODIUM [Concomitant]
     Active Substance: TINZAPARIN SODIUM
     Dosage: ,500UNITS/0.45ML
  7. IBUPROFEN. [Concomitant]
     Active Substance: IBUPROFEN
  8. OMEPRAZOLE. [Suspect]
     Active Substance: OMEPRAZOLE
     Route: 048
  9. FOLIC ACID. [Concomitant]
     Active Substance: FOLIC ACID
  10. METOCLOPRAMIDE. [Suspect]
     Active Substance: METOCLOPRAMIDE
     Dosage: 10MG/2ML
  11. CODEINE [Concomitant]
     Active Substance: CODEINE
  12. FLUCONAZOLE. [Suspect]
     Active Substance: FLUCONAZOLE
     Route: 065
  13. LEVOFLOXACIN. [Suspect]
     Active Substance: LEVOFLOXACIN
     Dates: start: 20190116
  14. CASPOFUNGIN [Concomitant]
     Active Substance: CASPOFUNGIN
     Dosage: 70 MILLIGRAM DAILY; IN THE MORNING
     Dates: start: 20181102, end: 20181102
  15. CYCLIZINE [Concomitant]
     Active Substance: CYCLIZINE
  16. ADIZEM [Concomitant]
     Active Substance: DILTIAZEM HYDROCHLORIDE
  17. GABAPENTIN. [Concomitant]
     Active Substance: GABAPENTIN
  18. LEVOTHYROXINE SODIUM. [Concomitant]
     Active Substance: LEVOTHYROXINE SODIUM
     Dosage: 50 UG
     Route: 055
  19. NYSTATIN. [Concomitant]
     Active Substance: NYSTATIN
     Dosage: 100,000UNITS/ML
     Dates: start: 20190120, end: 20190127
  20. VANCOMYCIN [Concomitant]
     Active Substance: VANCOMYCIN
     Dates: start: 20190130
  21. LEVOTHYROXINE SODIUM. [Concomitant]
     Active Substance: LEVOTHYROXINE SODIUM
     Dosage: 100 UG
     Route: 055
  22. METRONIDAZOLE. [Suspect]
     Active Substance: METRONIDAZOLE
     Dosage: 500MG/100ML INFUSION 100ML BAGS
     Dates: start: 20190128, end: 20190130
  23. LEVOTHYROXINE SODIUM. [Concomitant]
     Active Substance: LEVOTHYROXINE SODIUM
  24. CHLORPHENAMINE [Concomitant]
     Active Substance: CHLORPHENIRAMINE MALEATE

REACTIONS (1)
  - Electrocardiogram QT prolonged [Not Recovered/Not Resolved]
